FAERS Safety Report 4330386-8 (Version None)
Quarter: 2004Q1

REPORT INFORMATION
  Report Type: 
  Country: None (occurrence: None)
  Receive Date: 20040330
  Receipt Date: 20040309
  Transmission Date: 20041129
  Serious: Yes (Hospitalization, Other)
  Sender: FDA-Public Use
  Company Number: US_010362125

PATIENT
  Sex: Female
  Weight: 55 kg

DRUGS (24)
  1. HUMALOG [Suspect]
     Indication: DIABETES MELLITUS
     Dosage: 5 U IN THE MORNING
     Dates: start: 20000101
  2. HUMULIN U [Suspect]
     Indication: DIABETES MELLITUS
  3. HUMULIN R [Suspect]
     Indication: DIABETES MELLITUS
  4. HUMULIN N [Suspect]
     Indication: DIABETES MELLITUS
  5. HUMULIN L [Suspect]
     Indication: DIABETES MELLITUS
  6. ASPIRIN [Concomitant]
  7. INDERAL [Concomitant]
  8. SYNTHROID [Concomitant]
  9. LOMOTIL [Concomitant]
  10. FOLIC ACID [Concomitant]
  11. VITAMINS B12 DULCIS [Concomitant]
  12. DALMANE [Concomitant]
  13. FOSAMAX [Concomitant]
  14. QUESTRAN [Concomitant]
  15. COUMADIN [Concomitant]
  16. PREVACID [Concomitant]
  17. BACTRIM DS [Concomitant]
  18. LASIX [Concomitant]
  19. CELEBREX [Concomitant]
  20. OSCAL (CALCIUM CARBONATE) [Concomitant]
  21. PERCOCET [Concomitant]
  22. LANTUS [Concomitant]
  23. COZAAR [Concomitant]
  24. LANTUS [Concomitant]

REACTIONS (30)
  - BLINDNESS UNILATERAL [None]
  - BLOOD GLUCOSE FLUCTUATION [None]
  - BLOOD GLUCOSE INCREASED [None]
  - BODY HEIGHT DECREASED [None]
  - CATARACT [None]
  - CHEST PAIN [None]
  - DIFFICULTY IN WALKING [None]
  - EYE IRRITATION [None]
  - EYE PAIN [None]
  - EYE PRURITUS [None]
  - FALL [None]
  - GASTRIC DISORDER [None]
  - HAEMATURIA [None]
  - HYPERGLYCAEMIA [None]
  - HYPERTENSION [None]
  - HYPOGLYCAEMIA [None]
  - HYPOTENSION [None]
  - HYPOTHYROIDISM [None]
  - MACULAR DEGENERATION [None]
  - MITRAL VALVE PROLAPSE [None]
  - OSTEOPOROSIS [None]
  - PALLOR [None]
  - PELVIC FRACTURE [None]
  - PERNICIOUS ANAEMIA [None]
  - SHOCK HYPOGLYCAEMIC [None]
  - SWELLING [None]
  - THYROID DISORDER [None]
  - TRANSIENT ISCHAEMIC ATTACK [None]
  - UPPER RESPIRATORY TRACT INFECTION [None]
  - URINARY TRACT INFECTION [None]
